FAERS Safety Report 21682404 (Version 2)
Quarter: 2022Q4

REPORT INFORMATION
  Report Type: Other
  Country: US (occurrence: None)
  Receive Date: 20221205
  Receipt Date: 20221207
  Transmission Date: 20230113
  Serious: No
  Sender: FDA-Public Use
  Company Number: US-ROCHE-3228261

PATIENT
  Age: 64 Year
  Sex: Female

DRUGS (1)
  1. OCREVUS [Suspect]
     Active Substance: OCRELIZUMAB
     Indication: Relapsing multiple sclerosis
     Dosage: UNKNOWN; DATE OF TREATMENT: 12/APR/2021, 15/APR/2021
     Route: 065
     Dates: start: 20180803

REACTIONS (3)
  - Antibody test negative [Not Recovered/Not Resolved]
  - COVID-19 [Recovered/Resolved]
  - B-lymphocyte count decreased [Recovering/Resolving]

NARRATIVE: CASE EVENT DATE: 20220101
